FAERS Safety Report 12297847 (Version 1)
Quarter: 2016Q2

REPORT INFORMATION
  Report Type: Spontaneous
  Country: JP (occurrence: JP)
  Receive Date: 20160422
  Receipt Date: 20160422
  Transmission Date: 20160815
  Serious: Yes (Other)
  Sender: FDA-Public Use
  Company Number: JP-PFIZER INC-2016225417

PATIENT
  Age: 58 Year
  Sex: Female

DRUGS (5)
  1. SODIUM RISEDRONATE HYDRATE [Concomitant]
     Dosage: UNK
  2. ESOMEPRAZOLE MAGNESIUM HYDRATE [Concomitant]
     Dosage: UNK
  3. CARBAZOCHROME SODIUM SULFONATE HYDRATE [Concomitant]
     Dosage: UNK
  4. CEFCAPENE PIVOXIL HYDROCHLORIDE HYDRATE [Concomitant]
     Active Substance: CEFCAPENE PIVOXIL HYDROCHLORIDE HYDRATE
     Dosage: UNK
  5. AMLODIN [Suspect]
     Active Substance: AMLODIPINE BESYLATE
     Indication: SCLERODERMA
     Dosage: 2.5 MG, DAILY

REACTIONS (1)
  - Rhabdomyolysis [Unknown]
